FAERS Safety Report 10110450 (Version 1)
Quarter: 2014Q2

REPORT INFORMATION
  Report Type: Spontaneous
  Country: TR (occurrence: None)
  Receive Date: 20140423
  Receipt Date: 20140423
  Transmission Date: 20141212
  Serious: Yes (Hospitalization)
  Sender: FDA-Public Use
  Company Number: 2014AP002661

PATIENT
  Age: 15 Year
  Sex: Male

DRUGS (1)
  1. RISPERIDONE [Suspect]
     Indication: MAJOR DEPRESSION

REACTIONS (4)
  - Head injury [None]
  - Bradycardia [None]
  - Syncope [None]
  - Hypotension [None]
